FAERS Safety Report 20541991 (Version 3)
Quarter: 2022Q2

REPORT INFORMATION
  Report Type: Spontaneous
  Country: JP (occurrence: JP)
  Receive Date: 20220302
  Receipt Date: 20220406
  Transmission Date: 20220721
  Serious: Yes (Hospitalization)
  Sender: FDA-Public Use
  Company Number: JP-Eisai-202112297_LEN-HCC_P_1

PATIENT
  Sex: Female

DRUGS (4)
  1. LENVIMA [Suspect]
     Active Substance: LENVATINIB
     Indication: Hepatocellular carcinoma
     Route: 048
     Dates: start: 20180423, end: 20180705
  2. LENVIMA [Suspect]
     Active Substance: LENVATINIB
     Route: 048
     Dates: start: 20180706, end: 20190907
  3. LENVIMA [Suspect]
     Active Substance: LENVATINIB
     Dosage: 8 MG, 5 DAYS ON/2 DAYS OFF
     Route: 048
     Dates: start: 20191129, end: 20200312
  4. NEXAVAR [Concomitant]
     Active Substance: SORAFENIB
     Indication: Hepatocellular carcinoma
     Route: 048
     Dates: start: 20190908, end: 20191128

REACTIONS (2)
  - Oedema [Unknown]
  - Ascites [Unknown]

NARRATIVE: CASE EVENT DATE: 20180706
